FAERS Safety Report 20224183 (Version 2)
Quarter: 2021Q4

REPORT INFORMATION
  Report Type: Report from Study
  Country: RU (occurrence: RU)
  Receive Date: 20211223
  Receipt Date: 20211231
  Transmission Date: 20220303
  Serious: Yes (Other)
  Sender: FDA-Public Use
  Company Number: RU-SERVIER-S21014082

PATIENT

DRUGS (25)
  1. PEGASPARGASE [Suspect]
     Active Substance: PEGASPARGASE
     Indication: B-cell type acute leukaemia
     Dosage: 2025 U (2500 U/M?), ON DAY 3
     Route: 042
     Dates: start: 20211202, end: 20211202
  2. TN UNSPECIFIED [Concomitant]
     Indication: B-cell type acute leukaemia
     Dosage: 0.5 MG, QD
     Route: 048
     Dates: start: 20211130, end: 20211130
  3. TN UNSPECIFIED [Concomitant]
     Dosage: 2 MG, QD
     Route: 037
     Dates: start: 20211130, end: 20211130
  4. TN UNSPECIFIED [Concomitant]
     Dosage: 2 MG, QD
     Route: 048
     Dates: start: 20211201, end: 20211201
  5. TN UNSPECIFIED [Concomitant]
     Dosage: 3 MG, QD
     Route: 048
     Dates: start: 20211202, end: 20211202
  6. TN UNSPECIFIED [Concomitant]
     Dosage: 4 MG, QD
     Route: 048
     Dates: start: 20211203, end: 20211203
  7. TN UNSPECIFIED [Concomitant]
     Dosage: 5 MG, QD
     Route: 048
     Dates: start: 20211204
  8. TN UNSPECIFIED [Concomitant]
     Dosage: 2 MG, QD
     Route: 037
     Dates: start: 20211207, end: 20211207
  9. TN UNSPECIFIED [Concomitant]
     Dosage: 2 MG, QD
     Route: 037
     Dates: start: 20211214, end: 20211214
  10. TN UNSPECIFIED [Concomitant]
     Indication: B-cell type acute leukaemia
     Dosage: 36 MG, QD
     Route: 051
     Dates: start: 20211207, end: 20211207
  11. TN UNSPECIFIED [Concomitant]
     Indication: B-cell type acute leukaemia
     Dosage: 12 MG, QD
     Route: 037
     Dates: start: 20211130, end: 20211130
  12. TN UNSPECIFIED [Concomitant]
     Dosage: 12 MG, QD
     Route: 037
     Dates: start: 20211207, end: 20211207
  13. TN UNSPECIFIED [Concomitant]
     Dosage: 12 MG, QD
     Route: 037
     Dates: start: 20211214, end: 20211214
  14. TN UNSPECIFIED [Concomitant]
     Indication: B-cell type acute leukaemia
     Dosage: 30 MG, QD
     Route: 037
     Dates: start: 20211130, end: 20211130
  15. TN UNSPECIFIED [Concomitant]
     Dosage: 30 MG, QD
     Route: 037
     Dates: start: 20211207, end: 20211207
  16. TN UNSPECIFIED [Concomitant]
     Dosage: 30 MG, QD
     Route: 037
     Dates: start: 20211214, end: 20211214
  17. TN UNSPECIFIED [Concomitant]
     Indication: B-cell type acute leukaemia
     Dosage: 1.2 MG, QD
     Route: 051
     Dates: start: 20211207, end: 20211207
  18. TN UNSPECIFIED [Concomitant]
     Dosage: 0.6 MG, QD
     Route: 051
     Dates: start: 20211214, end: 20211214
  19. TN UNSPECIFIED [Concomitant]
     Indication: Poisoning
     Dosage: 500 ML, QD
     Route: 051
     Dates: start: 20211123
  20. DEXTROSE [Concomitant]
     Active Substance: DEXTROSE
     Indication: Poisoning
     Dosage: 600 ML, QD
     Route: 051
     Dates: start: 20211123
  21. TN UNSPECIFIED [Concomitant]
     Indication: Febrile neutropenia
     Dosage: 1 G, TID
     Route: 051
     Dates: start: 20211123
  22. TN UNSPECIFIED [Concomitant]
     Indication: Prophylaxis
  23. TN UNSPECIFIED [Concomitant]
     Indication: Pneumocystis jirovecii pneumonia
     Dosage: 1440 MG, 1X/WEEK
     Route: 048
     Dates: start: 20211125
  24. TN UNSPECIFIED [Concomitant]
     Indication: Prophylaxis
  25. TN UNSPECIFIED [Concomitant]
     Indication: Gastrooesophageal reflux prophylaxis
     Dosage: 7 ML, BID
     Route: 048
     Dates: start: 20211130

REACTIONS (4)
  - Antithrombin III decreased [Not Recovered/Not Resolved]
  - White blood cell count decreased [Not Recovered/Not Resolved]
  - Neutrophil count decreased [Not Recovered/Not Resolved]
  - Blood fibrinogen decreased [Not Recovered/Not Resolved]

NARRATIVE: CASE EVENT DATE: 20211207
